FAERS Safety Report 8915952 (Version 2)
Quarter: 2013Q1

REPORT INFORMATION
  Report Type: Spontaneous
  Country: US (occurrence: US)
  Receive Date: 20121119
  Receipt Date: 20130122
  Transmission Date: 20140127
  Serious: Yes (Hospitalization)
  Sender: FDA-Public Use
  Company Number: US-GLAXOSMITHKLINE-A0777228A

PATIENT
  Age: 75 Year
  Sex: Female

DRUGS (1)
  1. AVANDIA [Suspect]
     Indication: TYPE 2 DIABETES MELLITUS
     Dosage: 4MG PER DAY
     Route: 048
     Dates: start: 1999, end: 20071031

REACTIONS (6)
  - Sick sinus syndrome [Unknown]
  - Angina pectoris [Unknown]
  - Retinopathy [Unknown]
  - Blindness [Unknown]
  - Cardiac failure congestive [Unknown]
  - Coronary artery disease [Unknown]
